FAERS Safety Report 10156332 (Version 1)
Quarter: 2014Q2

REPORT INFORMATION
  Report Type: Spontaneous
  Country: FR (occurrence: FR)
  Receive Date: 20140507
  Receipt Date: 20140507
  Transmission Date: 20141212
  Serious: Yes (Hospitalization)
  Sender: FDA-Public Use
  Company Number: FR-PFIZER INC-2014124203

PATIENT
  Age: 85 Year
  Sex: Female

DRUGS (8)
  1. CORDARONE [Suspect]
     Indication: ATRIAL FIBRILLATION
     Dosage: 400 MG, 1X/DAY
     Route: 048
     Dates: end: 20140131
  2. SEROPLEX [Concomitant]
  3. KALEORID [Concomitant]
  4. KARDEGIC [Concomitant]
  5. IMOVANE [Concomitant]
  6. LAMALINE [Concomitant]
  7. TRIFLUCAN [Concomitant]
  8. ESOMEPRAZOLE [Concomitant]

REACTIONS (2)
  - Hypothyroidism [Recovering/Resolving]
  - Fall [Unknown]
